FAERS Safety Report 5955255-9 (Version None)
Quarter: 2008Q4

REPORT INFORMATION
  Report Type: 
  Country: None (occurrence: None)
  Receive Date: 20081031
  Receipt Date: 20080708
  Transmission Date: 20090506
  Serious: No
  Sender: FDA-Public Use
  Company Number: 2008PV036068

PATIENT
  Age: 59 Year
  Sex: Female
  Weight: 99.3377 kg

DRUGS (3)
  1. SYMLIN [Suspect]
     Indication: TYPE 2 DIABETES MELLITUS
     Dosage: 60 MCG; TID; SC
     Route: 058
     Dates: start: 20080708
  2. METFORMIN HCL [Concomitant]
  3. NOVOLOG [Concomitant]

REACTIONS (2)
  - BLOOD GLUCOSE INCREASED [None]
  - DIZZINESS [None]
